FAERS Safety Report 5046065-8 (Version None)
Quarter: 2006Q2

REPORT INFORMATION
  Report Type: 
  Country: None (occurrence: None)
  Receive Date: 20060629
  Receipt Date: 20060621
  Transmission Date: 20061013
  Serious: Yes (Other)
  Sender: FDA-Public Use
  Company Number: 2006078826

PATIENT
  Age: 40 Year
  Sex: Male
  Weight: 86.637 kg

DRUGS (9)
  1. GEMFIBROZIL [Suspect]
     Indication: BLOOD TRIGLYCERIDES INCREASED
     Dosage: 1200 MG (600 MG, 2 IN 1 D), ORAL
     Route: 048
     Dates: start: 20060401, end: 20060501
  2. LIPITOR [Concomitant]
  3. GENGRAF (CICLOSPORIN) [Concomitant]
  4. PROTONIX [Concomitant]
  5. CLONIDINE [Concomitant]
  6. CARDIZEM [Concomitant]
  7. TOPROL-XL [Concomitant]
  8. SEPTRA [Concomitant]
  9. AMBIEN [Concomitant]

REACTIONS (2)
  - BLOOD CREATININE INCREASED [None]
  - WHITE BLOOD CELL COUNT DECREASED [None]
